FAERS Safety Report 8152854-3 (Version None)
Quarter: 2012Q1

REPORT INFORMATION
  Report Type: 
  Country: None (occurrence: None)
  Receive Date: 20120221
  Receipt Date: 20120214
  Transmission Date: 20120608
  Serious: Yes (Hospitalization)
  Sender: FDA-Public Use
  Company Number: NL-B.I. PHARMACEUTICALS,INC./RIDGEFIELD-2012-NL-00085NL

PATIENT
  Sex: Female
  Weight: 80 kg

DRUGS (2)
  1. CARBASALATE CALCIUM [Concomitant]
     Dosage: DOSAGE UNKNOWN
  2. PERSANTIN [Suspect]
     Indication: CEREBROVASCULAR ACCIDENT
     Dosage: 400 MG
     Dates: start: 20081215, end: 20111215

REACTIONS (10)
  - ERYTHEMA [None]
  - FATIGUE [None]
  - ALOPECIA [None]
  - DECREASED APPETITE [None]
  - PALPITATIONS [None]
  - VISION BLURRED [None]
  - HEADACHE [None]
  - HYPOAESTHESIA [None]
  - BALANCE DISORDER [None]
  - DIZZINESS [None]
